FAERS Safety Report 10363656 (Version 3)
Quarter: 2014Q3

REPORT INFORMATION
  Report Type: Report from Study
  Country: JP (occurrence: JP)
  Receive Date: 20140805
  Receipt Date: 20140822
  Transmission Date: 20150326
  Serious: Yes (Death, Hospitalization)
  Sender: FDA-Public Use
  Company Number: JP-CELGENEUS-087-C4047-14074968

PATIENT
  Age: 77 Year
  Sex: Female
  Weight: 62.2 kg

DRUGS (18)
  1. MECOBALAMIN [Concomitant]
     Active Substance: METHYLCOBALAMIN
     Indication: NEUROPATHY PERIPHERAL
     Dosage: 500 MICROGRAM
     Route: 048
     Dates: start: 2013, end: 20140729
  2. CC-4047 [Suspect]
     Active Substance: POMALIDOMIDE
     Indication: PLASMA CELL MYELOMA
     Dosage: 4 MILLIGRAM
     Route: 048
     Dates: start: 20140625, end: 20140715
  3. NEUROVITAN [Concomitant]
     Active Substance: VITAMINS
     Indication: NEUROPATHY PERIPHERAL
     Dosage: 3 TABLET
     Route: 048
     Dates: start: 201312, end: 20140729
  4. MONTELUKAST SODIUM. [Concomitant]
     Active Substance: MONTELUKAST SODIUM
     Indication: ASTHMA
     Dosage: 10 MILLIGRAM
     Route: 048
     Dates: start: 201207, end: 20140729
  5. CC-4047 [Suspect]
     Active Substance: POMALIDOMIDE
     Dosage: 4 MILLIGRAM
     Route: 048
     Dates: start: 20140723, end: 20140728
  6. FUROSEMIDE. [Concomitant]
     Active Substance: FUROSEMIDE
     Indication: OEDEMA
     Dosage: 20 MILLIGRAM
     Route: 041
     Dates: start: 20140729, end: 20140729
  7. OXYGEN. [Concomitant]
     Active Substance: OXYGEN
     Indication: ASTHMA
     Route: 055
     Dates: start: 20140729
  8. ASPIRIN. [Concomitant]
     Active Substance: ASPIRIN
     Indication: THROMBOSIS PROPHYLAXIS
     Dosage: 100 MILLIGRAM
     Route: 048
     Dates: start: 20110112, end: 20140729
  9. MAGNESIUM OXIDE. [Concomitant]
     Active Substance: MAGNESIUM OXIDE
     Indication: CONSTIPATION
     Dosage: 960 MILLIGRAM
     Route: 048
     Dates: start: 20130605, end: 20140729
  10. AZULENE [Concomitant]
     Active Substance: AZULENE
     Indication: DERMATITIS ACNEIFORM
     Route: 062
     Dates: start: 20140702, end: 20140729
  11. LOXONIN [Concomitant]
     Active Substance: LOXOPROFEN SODIUM
     Indication: PNEUMONIA
     Dosage: 80 MILLIGRAM
     Route: 048
     Dates: start: 20140726, end: 20140729
  12. ATROPINE SULFATE. [Concomitant]
     Active Substance: ATROPINE SULFATE
     Indication: RESUSCITATION
     Dosage: 1.0 - 1.5MG
     Route: 048
     Dates: start: 20140729, end: 20140729
  13. REBAMIPIDE [Concomitant]
     Active Substance: REBAMIPIDE
     Indication: GASTRITIS PROPHYLAXIS
     Dosage: 300 MILLIGRAM
     Route: 048
     Dates: start: 20130605, end: 20140729
  14. EBASTINE [Concomitant]
     Active Substance: EBASTINE
     Indication: ASTHMA
     Dosage: 10 MILLIGRAM
     Route: 048
     Dates: start: 201207, end: 20140729
  15. DEXAMETHASONE. [Suspect]
     Active Substance: DEXAMETHASONE
     Indication: PLASMA CELL MYELOMA
     Dosage: 20 MILLIGRAM
     Route: 065
     Dates: start: 20140625, end: 20140716
  16. DEXAMETHASONE. [Suspect]
     Active Substance: DEXAMETHASONE
     Dosage: 20 MILLIGRAM
     Route: 065
     Dates: start: 20140723, end: 20140723
  17. AMLODIPINE BESYLATE. [Concomitant]
     Active Substance: AMLODIPINE BESYLATE
     Indication: HYPERTENSION
     Dosage: 5 MILLIGRAM
     Route: 048
     Dates: start: 2004, end: 20140729
  18. ADRENALINE [Concomitant]
     Active Substance: EPINEPHRINE
     Indication: RESUSCITATION
     Dosage: 6 MILLIGRAM
     Route: 041
     Dates: start: 20140729, end: 20140729

REACTIONS (2)
  - Pneumonia [Fatal]
  - Asthma [Fatal]

NARRATIVE: CASE EVENT DATE: 20140726
